FAERS Safety Report 7774563-2 (Version None)
Quarter: 2011Q3

REPORT INFORMATION
  Report Type: 
  Country: None (occurrence: None)
  Receive Date: 20110923
  Receipt Date: 20110921
  Transmission Date: 20111222
  Serious: Yes (Hospitalization, Disabling)
  Sender: FDA-Public Use
  Company Number: PL-ROCHE-790265

PATIENT
  Sex: Male
  Weight: 65 kg

DRUGS (3)
  1. TELAPREVIR [Suspect]
     Route: 048
     Dates: start: 20110419, end: 20110711
  2. RIBAVIRIN [Suspect]
     Route: 048
     Dates: start: 20110419, end: 20110714
  3. PEGINTERFERON ALFA-2A [Suspect]
     Route: 065
     Dates: start: 20110419

REACTIONS (2)
  - RENAL FAILURE [None]
  - ANAEMIA [None]
